FAERS Safety Report 5718255-X (Version None)
Quarter: 2008Q2

REPORT INFORMATION
  Report Type: 
  Country: None (occurrence: None)
  Receive Date: 20080425
  Receipt Date: 20080416
  Transmission Date: 20081010
  Serious: Yes (Other)
  Sender: FDA-Public Use
  Company Number: US-JNJFOC-20080404960

PATIENT
  Sex: Female
  Weight: 106.6 kg

DRUGS (14)
  1. REMICADE [Suspect]
     Indication: RHEUMATOID ARTHRITIS
     Route: 042
  2. PRILOSEC [Concomitant]
     Indication: GASTROOESOPHAGEAL REFLUX DISEASE
  3. MINOCYCLINE HCL [Concomitant]
     Indication: RHEUMATOID ARTHRITIS
  4. VYTORIN [Concomitant]
     Indication: BLOOD CHOLESTEROL
  5. LASIX [Concomitant]
     Indication: CARDIAC FAILURE CONGESTIVE
  6. ASPIRIN [Concomitant]
     Indication: CARDIAC DISORDER
  7. LOPRESSOR [Concomitant]
     Indication: CARDIAC DISORDER
  8. REGLAN [Concomitant]
     Indication: GASTROOESOPHAGEAL REFLUX DISEASE
  9. SALSALATE [Concomitant]
     Indication: RHEUMATOID ARTHRITIS
  10. CLONAZEPAM [Concomitant]
     Indication: RESTLESSNESS
  11. COLON CLENZ [Concomitant]
     Indication: CONSTIPATION
  12. CALCIUM [Concomitant]
     Indication: RESORPTION BONE INCREASED
  13. FLEXERIL [Concomitant]
     Indication: MUSCLE RELAXANT THERAPY
  14. DARVOCET [Concomitant]
     Indication: PAIN

REACTIONS (2)
  - HYPOGLYCAEMIA [None]
  - WEIGHT INCREASED [None]
